FAERS Safety Report 7207911-2 (Version None)
Quarter: 2010Q4

REPORT INFORMATION
  Report Type: 
  Country: None (occurrence: None)
  Receive Date: 20101221
  Receipt Date: 20101130
  Transmission Date: 20110411
  Serious: Yes (Other)
  Sender: FDA-Public Use
  Company Number: 725445

PATIENT
  Age: 64 Year
  Sex: Female

DRUGS (1)
  1. ENDURE 420 CIDA-STAT [Suspect]
     Indication: POSTOPERATIVE CARE
     Dosage: APPLICATION EVERY OTHER DAY
     Dates: start: 20101029, end: 20101123

REACTIONS (7)
  - APPLICATION SITE PAIN [None]
  - DRUG INEFFECTIVE [None]
  - EXFOLIATIVE RASH [None]
  - INFECTION [None]
  - INFLAMMATION [None]
  - RASH ERYTHEMATOUS [None]
  - RASH PRURITIC [None]
